FAERS Safety Report 4403786-5 (Version None)
Quarter: 2004Q3

REPORT INFORMATION
  Report Type: 
  Country: None (occurrence: None)
  Receive Date: 20040719
  Receipt Date: 20040712
  Transmission Date: 20050211
  Serious: Yes (Death, Other)
  Sender: FDA-Public Use
  Company Number: 1199410993

PATIENT
  Age: 72 Year
  Sex: Male

DRUGS (5)
  1. TRASYLOL [Suspect]
     Indication: HAEMORRHAGE
     Dosage: ONCE, INTRAVENOUS
     Route: 042
     Dates: start: 19940523
  2. TRASYLOL [Suspect]
     Indication: PROPHYLAXIS
     Dosage: ONCE, INTRAVENOUS
     Route: 042
     Dates: start: 19940523
  3. HEPARIN [Concomitant]
  4. PROTAMINE SULFATE [Concomitant]
  5. AMICAR [Concomitant]

REACTIONS (7)
  - CARDIAC ARREST [None]
  - CARDIAC FAILURE ACUTE [None]
  - CORONARY ARTERY THROMBOSIS [None]
  - DRUG HYPERSENSITIVITY [None]
  - HYPOTENSION [None]
  - POST PROCEDURAL COMPLICATION [None]
  - THROMBOSIS [None]
